FAERS Safety Report 19846104 (Version 3)
Quarter: 2022Q1

REPORT INFORMATION
  Report Type: Spontaneous
  Country: AU (occurrence: AU)
  Receive Date: 20210916
  Receipt Date: 20220204
  Transmission Date: 20220423
  Serious: No
  Sender: FDA-Public Use
  Company Number: AU-SA-2021SA301525

PATIENT

DRUGS (1)
  1. ENOXAPARIN SODIUM [Suspect]
     Active Substance: ENOXAPARIN SODIUM
     Dosage: UNK

REACTIONS (4)
  - Skin haemorrhage [Unknown]
  - Injury associated with device [Unknown]
  - Device safety feature issue [Unknown]
  - Accidental exposure to product [Unknown]
